FAERS Safety Report 6131143-2 (Version None)
Quarter: 2009Q1

REPORT INFORMATION
  Report Type: 
  Country: None (occurrence: None)
  Receive Date: 20090325
  Receipt Date: 20090316
  Transmission Date: 20090719
  Serious: Yes (Death)
  Sender: FDA-Public Use
  Company Number: IT-PFIZER INC-2009184322

PATIENT

DRUGS (4)
  1. SUNITINIB MALATE [Suspect]
     Indication: RENAL CANCER
     Dosage: 50 MG, 1X/DAY
     Route: 048
     Dates: start: 20090213, end: 20090306
  2. SOLDESAM [Concomitant]
     Dosage: 12 MG, UNK
  3. KEPPRA [Concomitant]
     Dosage: 1000 MG, UNK
     Route: 048
  4. LOSEC [Concomitant]
     Dosage: 40 MG, UNK
     Route: 048

REACTIONS (1)
  - CARDIOGENIC SHOCK [None]
